FAERS Safety Report 4520028-0 (Version None)
Quarter: 2005Q1

REPORT INFORMATION
  Report Type: 
  Country: None (occurrence: None)
  Receive Date: 20041028
  Receipt Date: 20040708
  Transmission Date: 20050727
  Serious: Yes (Hospitalization)
  Sender: FDA-Public Use
  Company Number: US082754

PATIENT
  Age: 83 Year
  Sex: Female
  Weight: 59.5 kg

DRUGS (16)
  1. SENSIPAR [Suspect]
     Indication: HYPERPARATHYROIDISM SECONDARY
     Dosage: 60 MG, 1 IN 1 DAYS, PO
     Route: 048
     Dates: start: 20040506, end: 20040707
  2. PHENYTOIN SODIUM [Concomitant]
  3. PHENOBARBITAL TAB [Concomitant]
  4. TRAZODONE HCL [Concomitant]
  5. OLANZAPINE [Concomitant]
  6. EPOGEN [Concomitant]
  7. CALCITRIOL [Concomitant]
  8. LEVOTHYROXINE SODIUM [Concomitant]
  9. SEVELAMER HCL [Concomitant]
  10. PARICALCITOL [Concomitant]
  11. CLONAZEPAM [Concomitant]
  12. ASPIRIN [Concomitant]
  13. GABAPENTIN [Concomitant]
  14. SORBITOL [Concomitant]
  15. DIATX [Concomitant]
  16. SODIUM BICARBONATE [Concomitant]

REACTIONS (5)
  - ANTICONVULSANT DRUG LEVEL BELOW THERAPEUTIC [None]
  - CONVULSION [None]
  - NAUSEA [None]
  - SYNCOPE [None]
  - VOMITING [None]
